FAERS Safety Report 5220043-8 (Version None)
Quarter: 2007Q1

REPORT INFORMATION
  Report Type: 
  Country: None (occurrence: None)
  Receive Date: 20070125
  Receipt Date: 20070122
  Transmission Date: 20070707
  Serious: Yes (Other)
  Sender: FDA-Public Use
  Company Number: US-MERCK-0701USA03673

PATIENT
  Age: 64 Year
  Sex: Female

DRUGS (2)
  1. FOSAMAX [Suspect]
     Indication: OSTEOPOROSIS
     Route: 048
     Dates: start: 19980101, end: 20070108
  2. EVISTA [Concomitant]
     Route: 065
     Dates: start: 20061001

REACTIONS (2)
  - BREAST CANCER [None]
  - TEMPOROMANDIBULAR JOINT SYNDROME [None]
